FAERS Safety Report 5876061-X (Version None)
Quarter: 2008Q3

REPORT INFORMATION
  Report Type: 
  Country: None (occurrence: None)
  Receive Date: 20080908
  Receipt Date: 20080908
  Transmission Date: 20090109
  Serious: No
  Sender: FDA-Public Use
  Company Number: None

PATIENT
  Sex: Female
  Weight: 75.7507 kg

DRUGS (2)
  1. ABILIFY [Suspect]
     Indication: BIPOLAR DISORDER
     Dosage: 30 MG ONCE AT BED TIME PO
     Route: 048
  2. SEROQUEL [Suspect]
     Indication: SCHIZOAFFECTIVE DISORDER
     Dosage: 25 MG TWICE AT BEDTIME PO
     Route: 048

REACTIONS (6)
  - HEADACHE [None]
  - MUSCLE RIGIDITY [None]
  - TARDIVE DYSKINESIA [None]
  - TIC [None]
  - VOMITING [None]
  - WITHDRAWAL SYNDROME [None]
